FAERS Safety Report 16111490 (Version 1)
Quarter: 2019Q1

REPORT INFORMATION
  Report Type: Spontaneous
  Country: US (occurrence: US)
  Receive Date: 20190325
  Receipt Date: 20190325
  Transmission Date: 20190418
  Serious: No
  Sender: FDA-Public Use
  Company Number: US-ASTRAZENECA-2019SE32004

PATIENT
  Age: 885 Month
  Sex: Male
  Weight: 113.4 kg

DRUGS (3)
  1. BYDUREON BCISE [Suspect]
     Active Substance: EXENATIDE
     Indication: TYPE 2 DIABETES MELLITUS
     Route: 058
     Dates: start: 201810
  2. METFORMIN [Concomitant]
     Active Substance: METFORMIN HYDROCHLORIDE
     Indication: TYPE 2 DIABETES MELLITUS
  3. BYDUREON [Suspect]
     Active Substance: EXENATIDE
     Indication: TYPE 2 DIABETES MELLITUS
     Route: 058

REACTIONS (7)
  - Device leakage [Unknown]
  - Vascular dementia [Not Recovered/Not Resolved]
  - Needle issue [Unknown]
  - Device malfunction [Unknown]
  - Product dose omission [Recovered/Resolved]
  - Blood glucose increased [Not Recovered/Not Resolved]
  - Intentional device misuse [Recovered/Resolved]

NARRATIVE: CASE EVENT DATE: 201809
